FAERS Safety Report 10275370 (Version 1)
Quarter: 2014Q2

REPORT INFORMATION
  Report Type: Spontaneous
  Country: US (occurrence: None)
  Receive Date: 20140630
  Receipt Date: 20140630
  Transmission Date: 20141212
  Serious: No
  Sender: FDA-Public Use
  Company Number: None

PATIENT
  Age: 59 Year
  Sex: Male
  Weight: 118 kg

DRUGS (2)
  1. CIPROFLOXACIN 500 MG [Suspect]
     Indication: WOUND INFECTION
     Route: 048
     Dates: start: 20140321, end: 20140408
  2. VORICONAZOLE [Suspect]
     Indication: ASPERGILLUS INFECTION
     Route: 048
     Dates: start: 20140313, end: 20140407

REACTIONS (1)
  - Tubulointerstitial nephritis [None]
